FAERS Safety Report 14015297 (Version 2)
Quarter: 2017Q4

REPORT INFORMATION
  Report Type: Report from Study
  Country: US (occurrence: US)
  Receive Date: 20170927
  Receipt Date: 20171020
  Transmission Date: 20180321
  Serious: Yes (Other)
  Sender: FDA-Public Use
  Company Number: US-PFIZER INC-2017409568

PATIENT
  Age: 71 Year
  Sex: Female
  Weight: 43.8 kg

DRUGS (25)
  1. POSACONAZOLE [Concomitant]
     Active Substance: POSACONAZOLE
     Indication: PROPHYLAXIS
     Dosage: 100 MG 3 TABLETS, DAILY (100 MG, THREE TIMES DAILY)
     Route: 048
     Dates: end: 20170811
  2. TYLENOL [Concomitant]
     Active Substance: ACETAMINOPHEN
     Indication: PROPHYLAXIS
     Dosage: UNK UNK, PRN
     Dates: start: 20170805
  3. FAMOTIDINE. [Concomitant]
     Active Substance: FAMOTIDINE
     Indication: PROPHYLAXIS
     Dosage: 20 MG, DAILY
     Route: 048
  4. TEMAZEPAM. [Concomitant]
     Active Substance: TEMAZEPAM
     Indication: INSOMNIA
     Dosage: 7.5 MG 1-2 PRN
  5. POTASSIUM CHLORIDE. [Concomitant]
     Active Substance: POTASSIUM CHLORIDE
     Indication: SUPPLEMENTATION THERAPY
     Dosage: 40 MEQ, UNK
     Route: 042
     Dates: start: 20170806, end: 20170806
  6. DEX 8 [Concomitant]
     Indication: PROPHYLAXIS
     Dosage: UNK UNK, WEEKLY
     Dates: start: 20170809, end: 20170814
  7. LISINOPRIL. [Concomitant]
     Active Substance: LISINOPRIL
     Dosage: 5 MG, DAILY
     Dates: start: 20170807
  8. VALTREX [Concomitant]
     Active Substance: VALACYCLOVIR HYDROCHLORIDE
     Indication: PROPHYLAXIS
     Dosage: 500 MG, Q 12 HOURS
     Route: 048
  9. INSULIN LISPRO [Concomitant]
     Active Substance: INSULIN LISPRO
     Indication: DIABETES MELLITUS
     Dosage: HUMAN, 6 UNITS WITH BREAKFAST, 6 UNITS WITH BREAKFAST, LUNCH AND DINNER
  10. INOTUZUMAB OZOGAMICIN [Suspect]
     Active Substance: INOTUZUMAB OZOGAMICIN
     Dosage: 0.8 MG/M2, DAILY
     Route: 042
     Dates: start: 20170811, end: 20170811
  11. INOTUZUMAB OZOGAMICIN [Suspect]
     Active Substance: INOTUZUMAB OZOGAMICIN
     Dosage: 0.5 MG/M2, UNK
     Dates: start: 20170825
  12. ATOVAQUONE. [Concomitant]
     Active Substance: ATOVAQUONE
     Indication: PROPHYLAXIS
     Dosage: 750 MG/5 ML, 10 ML,  DAILY
     Route: 048
  13. MEROPENEM. [Concomitant]
     Active Substance: MEROPENEM
     Indication: LUNG ABSCESS
     Dosage: 1 G, Q 8 H
     Route: 042
     Dates: start: 20170731, end: 20170822
  14. FILGRASTIM [Concomitant]
     Active Substance: FILGRASTIM
     Indication: NEUTROPENIA
     Dosage: 300 MCG, UNK
     Dates: start: 20170804, end: 20170811
  15. AMLODIPINE [Concomitant]
     Active Substance: AMLODIPINE BESYLATE
     Indication: HYPERTENSION
     Dosage: 5 MG, DAILY
     Dates: start: 20170805
  16. DEX 8 [Concomitant]
     Dosage: UNK, WEEKLY
     Dates: start: 20170817
  17. LISINOPRIL. [Concomitant]
     Active Substance: LISINOPRIL
     Indication: HYPERTENSION
     Dosage: 5 MG, DAILY
     Dates: start: 20170806
  18. POSACONAZOLE [Concomitant]
     Active Substance: POSACONAZOLE
     Dosage: 300 MG, DAILY (100 MG 3 TABLETS)
     Dates: end: 20170812
  19. INOTUZUMAB OZOGAMICIN [Suspect]
     Active Substance: INOTUZUMAB OZOGAMICIN
     Dosage: 0.5 MG/M2, UNK
     Dates: start: 20170818
  20. URSODIOL. [Concomitant]
     Active Substance: URSODIOL
     Dosage: 300 MG, DAILY
  21. CHOLECALCIFEROL [Concomitant]
     Active Substance: CHOLECALCIFEROL
     Indication: PROPHYLAXIS
     Dosage: 2000 UNITS, DAILY
     Route: 048
  22. VANCOMYCIN [Concomitant]
     Active Substance: VANCOMYCIN
     Indication: LUNG ABSCESS
     Dosage: 1 G, UNK
     Dates: start: 20170802, end: 20170809
  23. AMLODIPINE [Concomitant]
     Active Substance: AMLODIPINE BESYLATE
     Dosage: 5 MG, DAILY
     Dates: start: 20170813
  24. CALCIUM CITRATE [Concomitant]
     Active Substance: CALCIUM CITRATE
     Indication: PROPHYLAXIS
     Dosage: 500 MG, DAILY
     Route: 048
  25. AZITHROMYCIN ANHYDROUS. [Concomitant]
     Active Substance: AZITHROMYCIN ANHYDROUS
     Indication: LUNG ABSCESS
     Dosage: 500 MG, DAILY
     Dates: start: 20170804, end: 20170808

REACTIONS (12)
  - Bone pain [Not Recovered/Not Resolved]
  - Injection site erythema [Recovered/Resolved]
  - Fatigue [Not Recovered/Not Resolved]
  - Vomiting [Recovered/Resolved]
  - Parotitis [Not Recovered/Not Resolved]
  - Hypoacusis [Recovered/Resolved]
  - Nausea [Recovered/Resolved]
  - Cachexia [Not Recovered/Not Resolved]
  - Candida infection [Not Recovered/Not Resolved]
  - Cerumen impaction [Not Recovered/Not Resolved]
  - Weight decreased [Not Recovered/Not Resolved]
  - Chapped lips [Not Recovered/Not Resolved]

NARRATIVE: CASE EVENT DATE: 20170815
